FAERS Safety Report 13664581 (Version 2)
Quarter: 2017Q3

REPORT INFORMATION
  Report Type: Spontaneous
  Country: US (occurrence: US)
  Receive Date: 20170619
  Receipt Date: 20170809
  Transmission Date: 20171127
  Serious: No
  Sender: FDA-Public Use
  Company Number: US-GLAXOSMITHKLINE-US2017092295

PATIENT
  Age: 16 Year
  Sex: Female

DRUGS (1)
  1. BREO ELLIPTA [Suspect]
     Active Substance: FLUTICASONE FUROATE\VILANTEROL TRIFENATATE
     Indication: ASTHMA
     Dosage: 1 PUFF(S), 1D
     Route: 055
     Dates: start: 20170526

REACTIONS (6)
  - Abdominal distension [Recovered/Resolved]
  - Off label use [Unknown]
  - Product use issue [Unknown]
  - Flatulence [Recovered/Resolved]
  - Labelled drug-disease interaction medication error [Unknown]
  - Drug ineffective [Unknown]
